FAERS Safety Report 14571349 (Version 1)
Quarter: 2018Q1

REPORT INFORMATION
  Report Type: Spontaneous
  Country: US (occurrence: US)
  Receive Date: 20180226
  Receipt Date: 20180226
  Transmission Date: 20180509
  Serious: No
  Sender: FDA-Public Use
  Company Number: US-009507513-0806USA08061

PATIENT
  Sex: Male

DRUGS (3)
  1. PROPECIA [Suspect]
     Active Substance: FINASTERIDE
     Indication: ALOPECIA
     Dosage: 1 MG PER DAY, ON AND OFF
     Route: 048
     Dates: start: 200409, end: 200711
  2. PROPECIA [Suspect]
     Active Substance: FINASTERIDE
     Dosage: UNK
     Route: 048
     Dates: start: 20071218, end: 20071218
  3. LEXAPRO [Concomitant]
     Active Substance: ESCITALOPRAM OXALATE
     Dosage: UNK
     Dates: end: 200709

REACTIONS (10)
  - Insomnia [Recovered/Resolved]
  - Libido decreased [Recovered/Resolved]
  - Mania [Recovered/Resolved]
  - Chest pain [Recovered/Resolved]
  - Anxiety [Recovered/Resolved]
  - Negative thoughts [Recovered/Resolved]
  - Nipple swelling [Recovered/Resolved]
  - Nipple pain [Recovered/Resolved]
  - Irritability [Recovered/Resolved]
  - Wrong technique in product usage process [Unknown]

NARRATIVE: CASE EVENT DATE: 200712
